FAERS Safety Report 8043714 (Version 3)
Quarter: 2014Q2

REPORT INFORMATION
  Report Type: Spontaneous
  Country: US (occurrence: US)
  Receive Date: 20110719
  Receipt Date: 20140624
  Transmission Date: 20141212
  Serious: Yes (Hospitalization)
  Sender: FDA-Public Use
  Company Number: US-GLAXOSMITHKLINE-A0882805A

PATIENT
  Sex: Female
  Weight: 87.7 kg

DRUGS (15)
  1. AVANDIA [Suspect]
     Indication: TYPE 2 DIABETES MELLITUS
     Dosage: 8MG PER DAY
     Route: 048
     Dates: start: 200109, end: 200805
  2. ASPIRIN [Concomitant]
  3. METFORMIN [Concomitant]
  4. ISOSORBIDE MONONITRATE [Concomitant]
  5. TOPROL XL [Concomitant]
  6. BENAZEPRIL [Concomitant]
  7. CRESTOR [Concomitant]
  8. VITAMIN C [Concomitant]
  9. IRON [Concomitant]
  10. HYDROCHLOROTHIAZIDE [Concomitant]
  11. LIPITOR [Concomitant]
  12. LOTENSIN [Concomitant]
  13. GLUCOPHAGE [Concomitant]
  14. GLUCOTROL XL [Concomitant]
  15. CELEBREX [Concomitant]

REACTIONS (3)
  - Angina pectoris [Unknown]
  - Coronary artery disease [Unknown]
  - Cardiac disorder [Unknown]
